FAERS Safety Report 6518487-7 (Version None)
Quarter: 2009Q4

REPORT INFORMATION
  Report Type: 
  Country: None (occurrence: None)
  Receive Date: 20091226
  Receipt Date: 20091215
  Transmission Date: 20100525
  Serious: Yes (Hospitalization)
  Sender: FDA-Public Use
  Company Number: US-JNJFOC-20091204249

PATIENT
  Age: 18 Year
  Sex: Male
  Weight: 22 kg

DRUGS (3)
  1. MYLANTA [Suspect]
     Indication: DRUG USE FOR UNKNOWN INDICATION
     Dosage: 4-8 TEASPOONS DAILY
  2. OSMOLITE [Concomitant]
     Dosage: 16-32 OUNCES DAILY
  3. PHENOBARBITAL [Concomitant]
     Indication: CONVULSION
     Dosage: 60-90 MG DAILY

REACTIONS (2)
  - HYPOCALCIURIA [None]
  - HYPOPHOSPHATAEMIC RICKETS [None]
